FAERS Safety Report 5805912-X (Version None)
Quarter: 2008Q3

REPORT INFORMATION
  Report Type: 
  Country: None (occurrence: None)
  Receive Date: 20080708
  Receipt Date: 20080701
  Transmission Date: 20090109
  Serious: Yes (Hospitalization, Other)
  Sender: FDA-Public Use
  Company Number: 235887J08USA

PATIENT
  Age: 56 Year
  Sex: Female
  Weight: 58.0604 kg

DRUGS (3)
  1. REBIF [Suspect]
     Indication: MULTIPLE SCLEROSIS
     Dosage: 44 MCG, 3 IN 1 WEEKS, SUBCTANEOUS
     Route: 058
     Dates: start: 20060802
  2. EXCEDRIN (EXCEDIN /00214201/) [Concomitant]
  3. TYLENOL (COTYLENOL) [Concomitant]

REACTIONS (3)
  - BLOOD COUNT ABNORMAL [None]
  - INJECTION SITE PAIN [None]
  - WEIGHT DECREASED [None]
